FAERS Safety Report 11372749 (Version 1)
Quarter: 2015Q3

REPORT INFORMATION
  Report Type: Spontaneous
  Country: US (occurrence: US)
  Receive Date: 20150811
  Receipt Date: 20150811
  Transmission Date: 20151125
  Serious: No
  Sender: FDA-Public Use
  Company Number: US-ELI_LILLY_AND_COMPANY-US201301000819

PATIENT
  Age: 51 Year
  Sex: Male

DRUGS (2)
  1. AXIRON [Suspect]
     Active Substance: TESTOSTERONE
     Dosage: 120 MG, QD
  2. AXIRON [Suspect]
     Active Substance: TESTOSTERONE
     Dosage: 120 MG, QD

REACTIONS (6)
  - Weight decreased [Unknown]
  - Tendon rupture [Unknown]
  - Intentional product misuse [Unknown]
  - Rotator cuff syndrome [Unknown]
  - Musculoskeletal disorder [Unknown]
  - Arthritis [Unknown]
